FAERS Safety Report 19692353 (Version 2)
Quarter: 2021Q4

REPORT INFORMATION
  Report Type: Spontaneous
  Country: US (occurrence: US)
  Receive Date: 20210812
  Receipt Date: 20211116
  Transmission Date: 20220303
  Serious: No
  Sender: FDA-Public Use
  Company Number: US-BRISTOL-MYERS SQUIBB COMPANY-BMS-2021-079768

PATIENT
  Age: 47 Year
  Sex: Female

DRUGS (8)
  1. ORENCIA [Suspect]
     Active Substance: ABATACEPT
     Indication: Rheumatoid arthritis
     Dosage: 125 MILLIGRAM, QWK
     Route: 058
     Dates: start: 20200522
  2. ORENCIA [Suspect]
     Active Substance: ABATACEPT
     Indication: Rheumatoid arthritis
     Dosage: 125 MILLIGRAM, QWK
     Route: 058
     Dates: start: 20200522
  3. ORENCIA [Suspect]
     Active Substance: ABATACEPT
     Indication: Crohn^s disease
  4. ORENCIA [Suspect]
     Active Substance: ABATACEPT
     Indication: Crohn^s disease
  5. ORENCIA [Suspect]
     Active Substance: ABATACEPT
     Indication: Psoriatic arthropathy
  6. ORENCIA [Suspect]
     Active Substance: ABATACEPT
     Indication: Psoriatic arthropathy
  7. ORENCIA [Suspect]
     Active Substance: ABATACEPT
     Indication: Arthritis enteropathic
  8. ORENCIA [Suspect]
     Active Substance: ABATACEPT
     Indication: Arthritis enteropathic

REACTIONS (1)
  - Drug ineffective [Unknown]
